FAERS Safety Report 21016637 (Version 1)
Quarter: 2022Q2

REPORT INFORMATION
  Report Type: Spontaneous
  Country: US (occurrence: US)
  Receive Date: 20220628
  Receipt Date: 20220628
  Transmission Date: 20220721
  Serious: No
  Sender: FDA-Public Use
  Company Number: US-ALXN-A202207470

PATIENT
  Sex: Female
  Weight: 90.703 kg

DRUGS (7)
  1. SOLIRIS [Suspect]
     Active Substance: ECULIZUMAB
     Indication: Neuromyelitis optica spectrum disorder
     Dosage: 300 MG, Q2W
     Route: 042
     Dates: start: 20190829
  2. SOLIRIS [Suspect]
     Active Substance: ECULIZUMAB
     Indication: Multiple sclerosis
  3. SOLIRIS [Suspect]
     Active Substance: ECULIZUMAB
     Indication: Polyneuropathy
  4. SOLIRIS [Suspect]
     Active Substance: ECULIZUMAB
     Indication: Insomnia
  5. ASPIRIN [Concomitant]
     Active Substance: ASPIRIN
     Indication: Product used for unknown indication
     Dosage: 300 MG, UNK
     Route: 065
  6. BENADRYL                           /00000402/ [Concomitant]
     Indication: Product used for unknown indication
     Dosage: 25 MG, UNK
     Route: 065
  7. PENICILLIN G [Concomitant]
     Active Substance: PENICILLIN G
     Indication: Product used for unknown indication
     Dosage: 600000 UNIT/1ML , UNK
     Route: 065

REACTIONS (1)
  - Malaise [Unknown]
